FAERS Safety Report 25943169 (Version 1)
Quarter: 2025Q4

REPORT INFORMATION
  Report Type: Spontaneous
  Country: US (occurrence: None)
  Receive Date: 20251020
  Receipt Date: 20251020
  Transmission Date: 20260117
  Serious: Yes (Hospitalization)
  Sender: FDA-CTU
  Company Number: None

PATIENT
  Age: 17 Year
  Sex: Male

DRUGS (4)
  1. MYCOPHENOLIC ACID [Suspect]
     Active Substance: MYCOPHENOLIC ACID
     Indication: Renal transplant
     Dosage: FREQUENCY : TWICE A DAY;?
     Route: 048
     Dates: start: 20240110
  2. TACROLIMUS [Suspect]
     Active Substance: TACROLIMUS
     Dosage: FREQUENCY : TWICE A DAY;?
     Route: 048
     Dates: start: 20240115
  3. FARXIGA [Concomitant]
     Active Substance: DAPAGLIFLOZIN PROPANEDIOL
  4. PREDNISONE [Concomitant]
     Active Substance: PREDNISONE

REACTIONS (1)
  - Creatinine renal clearance increased [None]

NARRATIVE: CASE EVENT DATE: 20251015
